FAERS Safety Report 26037749 (Version 1)
Quarter: 2025Q4

REPORT INFORMATION
  Report Type: Spontaneous
  Country: US (occurrence: US)
  Receive Date: 20251112
  Receipt Date: 20251112
  Transmission Date: 20260118
  Serious: Yes (Other)
  Sender: BRACCO
  Company Number: US-BRACCO-2024US06671

PATIENT
  Age: 37 Year
  Sex: Female

DRUGS (3)
  1. LUMASON [Suspect]
     Active Substance: SULFUR HEXAFLUORIDE
     Indication: Ultrasound pelvis
     Dosage: 1.5 ML, SINGLE
     Route: 042
     Dates: start: 20241022, end: 20241022
  2. LUMASON [Suspect]
     Active Substance: SULFUR HEXAFLUORIDE
     Indication: Ultrasound pelvis
     Dosage: 1.5 ML, SINGLE
     Route: 042
     Dates: start: 20241022, end: 20241022
  3. LUMASON [Suspect]
     Active Substance: SULFUR HEXAFLUORIDE
     Indication: Ultrasound pelvis
     Dosage: 1.5 ML, SINGLE
     Route: 042
     Dates: start: 20241022, end: 20241022

REACTIONS (1)
  - Hypersensitivity [Recovered/Resolved]

NARRATIVE: CASE EVENT DATE: 20241022
